FAERS Safety Report 4519826-9 (Version None)
Quarter: 2004Q4

REPORT INFORMATION
  Report Type: 
  Country: None (occurrence: None)
  Receive Date: 20041201
  Receipt Date: 20041201
  Transmission Date: 20050328
  Serious: No
  Sender: FDA-Public Use
  Company Number: None

PATIENT
  Age: 78 Year
  Sex: Male
  Weight: 52.4 kg

DRUGS (11)
  1. WARFARIN SODIUM [Suspect]
     Indication: PULMONARY EMBOLISM
     Dosage: VARIOUS, VARIOUS, ORAL
     Route: 048
  2. MEGESTROL ACETATE [Concomitant]
  3. CALCIUM CARBONATE [Concomitant]
  4. POTASSIUM CHLORIDE [Concomitant]
  5. MORPHINE SO4 [Concomitant]
  6. MORPHINE SO4 IR [Concomitant]
  7. OMEPRAZOLE [Concomitant]
  8. HEPARIN [Concomitant]
  9. FILGRASTIM [Concomitant]
  10. OCTREOTIDE ACETATE [Concomitant]
  11. PROCHLORPERAZINE MALEATE [Concomitant]

REACTIONS (1)
  - DRUG LEVEL ABOVE THERAPEUTIC [None]
